FAERS Safety Report 8671010 (Version 2)
Quarter: 2012Q4

REPORT INFORMATION
  Report Type: 
  Country: US (occurrence: US)
  Receive Date: 20120718
  Receipt Date: 20121017
  Transmission Date: 20130627
  Serious: Yes (Other)
  Sender: FDA-Public Use
  Company Number: US-BRISTOL-MYERS SQUIBB COMPANY-16413023

PATIENT
  Age: 72 Year
  Sex: Female
  Weight: 78 kg

DRUGS (8)
  1. COUMADIN [Suspect]
     Indication: ATRIAL FIBRILLATION
     Dosage: Prescription #: 7711398,1mg,dose increased to 11mg,then dropping back to 7.5-8mg
  2. ASPIRIN [Suspect]
  3. NORVASC [Concomitant]
  4. ATENOLOL [Concomitant]
  5. HCTZ [Concomitant]
  6. METAMUCIL [Concomitant]
  7. KLOR-CON [Concomitant]
     Dosage: M20,TID.
  8. LANSOPRAZOLE [Concomitant]

REACTIONS (5)
  - Pneumonia [Unknown]
  - International normalised ratio fluctuation [Unknown]
  - Vitamin D decreased [Unknown]
  - Nasopharyngitis [Unknown]
  - Haemoptysis [Unknown]
